FAERS Safety Report 19151846 (Version 1)
Quarter: 2021Q2

REPORT INFORMATION
  Report Type: Spontaneous
  Country: US (occurrence: US)
  Receive Date: 20210419
  Receipt Date: 20210419
  Transmission Date: 20210717
  Serious: No
  Sender: FDA-Public Use
  Company Number: NVSC2021US087008

PATIENT
  Sex: Female
  Weight: 61.22 kg

DRUGS (5)
  1. VIVELLE?DOT [Suspect]
     Active Substance: ESTRADIOL
     Indication: PRODUCT USED FOR UNKNOWN INDICATION
     Dosage: UNK
     Route: 065
  2. ESTROGEN [Concomitant]
     Active Substance: ESTROGENS
     Indication: HOT FLUSH
     Dosage: UNK
     Route: 065
  3. ESTRADIOL. [Suspect]
     Active Substance: ESTRADIOL
     Dosage: 0.05 MG
     Route: 065
     Dates: start: 20210402
  4. ESTRADIOL. [Suspect]
     Active Substance: ESTRADIOL
     Dosage: 1 DF(STARTED 4 YEARS AGO, 0.0375 MG)
     Route: 065
  5. ESTRADIOL. [Suspect]
     Active Substance: ESTRADIOL
     Indication: HOT FLUSH
     Dosage: 1 DF(STARTED 4 YEARS AGO, 0.0375 MG)
     Route: 065

REACTIONS (3)
  - Night sweats [Unknown]
  - Rash [Unknown]
  - Headache [Unknown]
